FAERS Safety Report 8203283-5 (Version None)
Quarter: 2012Q1

REPORT INFORMATION
  Report Type: 
  Country: None (occurrence: None)
  Receive Date: 20120312
  Receipt Date: 20120306
  Transmission Date: 20120608
  Serious: Yes (Hospitalization, Other)
  Sender: FDA-Public Use
  Company Number: JP-ROCHE-743268

PATIENT
  Sex: Female
  Weight: 50 kg

DRUGS (14)
  1. ACTEMRA [Suspect]
     Dosage: DOSE FORM: INJECTION
     Route: 041
     Dates: start: 20090404, end: 20090404
  2. ACTEMRA [Suspect]
     Route: 041
     Dates: start: 20090627, end: 20090627
  3. METHOTREXATE SODIUM [Suspect]
     Indication: RHEUMATOID ARTHRITIS
     Route: 048
  4. METHOTREXATE SODIUM [Suspect]
     Route: 048
     Dates: start: 20090725, end: 20091023
  5. LOXOPROFEN SODIUM [Suspect]
     Indication: RHEUMATOID ARTHRITIS
     Dosage: DOSE FORM: PERORAL AGENT
     Route: 048
  6. ACTEMRA [Suspect]
     Dosage: DOSE FORM: INJECTION
     Route: 041
     Dates: start: 20081206, end: 20081206
  7. ACTEMRA [Suspect]
     Dosage: DOSE FORM: INJECTION
     Route: 041
     Dates: start: 20090110, end: 20090110
  8. MUCOSTA [Concomitant]
     Indication: PROPHYLAXIS
     Dosage: DOSE FORM: PERORAL AGENT
     Route: 048
  9. ACTEMRA [Suspect]
     Dosage: DOSE FORM: INJECTION
     Route: 041
     Dates: start: 20090207, end: 20090207
  10. ACTEMRA [Suspect]
     Dosage: DOSE FORM: INJECTION
     Route: 041
     Dates: start: 20090307, end: 20090307
  11. ACTEMRA [Suspect]
     Route: 041
     Dates: start: 20091024, end: 20101013
  12. ACTEMRA [Suspect]
     Dosage: DOSE FORM: INJECTION
     Route: 041
     Dates: start: 20090502, end: 20090502
  13. ACTEMRA [Suspect]
     Indication: RHEUMATOID ARTHRITIS
     Dosage: DOSE FORM: INJECTION
     Route: 041
     Dates: start: 20081108, end: 20081108
  14. ACTEMRA [Suspect]
     Dosage: DOSE FORM: INJECTION
     Route: 041
     Dates: start: 20090530, end: 20090530

REACTIONS (6)
  - PORTAL VEIN THROMBOSIS [None]
  - HEPATORENAL FAILURE [None]
  - PUSTULAR PSORIASIS [None]
  - CHOLANGITIS SUPPURATIVE [None]
  - PLATELET COUNT DECREASED [None]
  - ANAEMIA [None]
